FAERS Safety Report 6115660-7 (Version None)
Quarter: 2009Q1

REPORT INFORMATION
  Report Type: 
  Country: None (occurrence: None)
  Receive Date: 20090313
  Receipt Date: 20090309
  Transmission Date: 20090719
  Serious: Yes (Other)
  Sender: FDA-Public Use
  Company Number: TW-ROXANE LABORATORIES, INC.-2009-RO-00219RO

PATIENT
  Age: 2 Year
  Sex: Female
  Weight: 11 kg

DRUGS (5)
  1. AMLODIPINE BESYLATE [Suspect]
     Indication: HYPERTENSION
     Dates: start: 20060522, end: 20061005
  2. AMLODIPINE BESYLATE [Suspect]
     Route: 048
  3. DEXTROSE DIALYSATE [Suspect]
     Indication: PERITONEAL DIALYSIS
  4. OXACILLIN [Suspect]
     Route: 042
     Dates: start: 20060901
  5. VANCOMYCIN [Suspect]
     Route: 033
     Dates: start: 20060901

REACTIONS (3)
  - LEUKOCYTOSIS [None]
  - MITRAL VALVE INCOMPETENCE [None]
  - PERICARDIAL EFFUSION [None]
